FAERS Safety Report 5570261-4 (Version None)
Quarter: 2007Q4

REPORT INFORMATION
  Report Type: 
  Country: None (occurrence: None)
  Receive Date: 20071219
  Receipt Date: 20071211
  Transmission Date: 20080405
  Serious: Yes (Hospitalization, Other)
  Sender: FDA-Public Use
  Company Number: 2007BI002348

PATIENT
  Age: 60 Year
  Sex: Female

DRUGS (3)
  1. AVONEX [Suspect]
     Indication: MULTIPLE SCLEROSIS
     Dosage: 30 UG QW IM
     Route: 030
     Dates: start: 19991001, end: 20040801
  2. AVONEX [Suspect]
     Indication: MULTIPLE SCLEROSIS
     Dosage: 30 UG QW IM
     Route: 030
     Dates: start: 20030801
  3. PREMARIN [Concomitant]

REACTIONS (7)
  - ABDOMINAL ABSCESS [None]
  - DRUG HYPERSENSITIVITY [None]
  - GRAND MAL CONVULSION [None]
  - IMPAIRED HEALING [None]
  - KIDNEY INFECTION [None]
  - NEPHRECTOMY [None]
  - RENAL FAILURE [None]
